FAERS Safety Report 10754690 (Version 1)
Quarter: 2015Q1

REPORT INFORMATION
  Report Type: Spontaneous
  Country: US (occurrence: None)
  Receive Date: 20150130
  Receipt Date: 20150130
  Transmission Date: 20150721
  Serious: Yes (Other)
  Sender: FDA-Public Use
  Company Number: None

PATIENT
  Age: 58 Year
  Sex: Female
  Weight: 58.97 kg

DRUGS (1)
  1. WELLBUTRIN [Suspect]
     Active Substance: BUPROPION HYDROCHLORIDE
     Indication: DEPRESSION
     Dosage: TAKEN BY MOUTH

REACTIONS (7)
  - Somnolence [None]
  - Drug dose omission [None]
  - Pain in extremity [None]
  - Mobility decreased [None]
  - Pain [None]
  - Lethargy [None]
  - Myalgia [None]

NARRATIVE: CASE EVENT DATE: 20150116
